FAERS Safety Report 7268431-2 (Version None)
Quarter: 2011Q1

REPORT INFORMATION
  Report Type: 
  Country: None (occurrence: None)
  Receive Date: 20110201
  Receipt Date: 20110126
  Transmission Date: 20110831
  Serious: Yes (Other)
  Sender: FDA-Public Use
  Company Number: US-PFIZER INC-2011019013

PATIENT
  Sex: Female

DRUGS (2)
  1. ESTRACE [Suspect]
     Dosage: UNK
     Route: 067
  2. PREMARIN [Suspect]
     Dosage: 0.625MG ORAL TABLET
     Route: 048

REACTIONS (1)
  - BREAST MASS [None]
